FAERS Safety Report 11454692 (Version 1)
Quarter: 2015Q3

REPORT INFORMATION
  Report Type: Spontaneous
  Country: US (occurrence: US)
  Receive Date: 20150831
  Receipt Date: 20150831
  Transmission Date: 20151125
  Serious: No
  Sender: FDA-Public Use
  Company Number: US-ELI_LILLY_AND_COMPANY-US201003006327

PATIENT
  Age: 58 Year
  Sex: Female

DRUGS (6)
  1. CYMBALTA [Suspect]
     Active Substance: DULOXETINE HYDROCHLORIDE
     Indication: DEPRESSION
     Dosage: 60 MG, 2/D
     Route: 048
     Dates: start: 200903
  2. THYROID THERAPY [Concomitant]
     Active Substance: UNSPECIFIED INGREDIENT
  3. CYMBALTA [Suspect]
     Active Substance: DULOXETINE HYDROCHLORIDE
     Dosage: 30 MG, DAILY (1/D)
     Route: 048
     Dates: start: 201002, end: 201003
  4. CYMBALTA [Suspect]
     Active Substance: DULOXETINE HYDROCHLORIDE
     Dosage: 20 MG, DAILY (1/D)
     Route: 048
     Dates: start: 201003, end: 20100401
  5. ESTROGEN NOS [Concomitant]
     Active Substance: ESTROGENS
     Route: 062
  6. CYMBALTA [Suspect]
     Active Substance: DULOXETINE HYDROCHLORIDE
     Dosage: 60 MG, DAILY (1/D)
     Route: 048
     Dates: end: 201002

REACTIONS (23)
  - Abnormal faeces [Not Recovered/Not Resolved]
  - Abdominal pain upper [Not Recovered/Not Resolved]
  - Cough [Recovering/Resolving]
  - Drug ineffective [Not Recovered/Not Resolved]
  - Dysphonia [Not Recovered/Not Resolved]
  - Night sweats [Recovered/Resolved]
  - Photophobia [Recovering/Resolving]
  - Drug withdrawal syndrome [Not Recovered/Not Resolved]
  - Fatigue [Recovering/Resolving]
  - Thinking abnormal [Not Recovered/Not Resolved]
  - Hyperhidrosis [Recovered/Resolved]
  - Abnormal dreams [Recovering/Resolving]
  - Hypoaesthesia [Not Recovered/Not Resolved]
  - Anxiety [Not Recovered/Not Resolved]
  - Dizziness [Not Recovered/Not Resolved]
  - Paraesthesia [Not Recovered/Not Resolved]
  - Tremor [Not Recovered/Not Resolved]
  - Decreased interest [Not Recovered/Not Resolved]
  - Dysgeusia [Not Recovered/Not Resolved]
  - Feeling abnormal [Recovering/Resolving]
  - Depersonalisation [Not Recovered/Not Resolved]
  - Tinnitus [Recovering/Resolving]
  - Diarrhoea [Not Recovered/Not Resolved]

NARRATIVE: CASE EVENT DATE: 2010
